FAERS Safety Report 8299367-6 (Version None)
Quarter: 2012Q2

REPORT INFORMATION
  Report Type: 
  Country: None (occurrence: None)
  Receive Date: 20120419
  Receipt Date: 20120416
  Transmission Date: 20120825
  Serious: Yes (Other)
  Sender: FDA-Public Use
  Company Number: US-ABBOTT-12P-163-0926012-00

PATIENT
  Sex: Male
  Weight: 87.168 kg

DRUGS (3)
  1. PRAVASTATIN [Concomitant]
     Indication: PRODUCT USED FOR UNKNOWN INDICATION
  2. LISINOPRIL [Concomitant]
     Indication: PRODUCT USED FOR UNKNOWN INDICATION
  3. HUMIRA [Suspect]
     Indication: PSORIASIS
     Dates: start: 20111101, end: 20120301

REACTIONS (3)
  - CAROTID ARTERY STENOSIS [None]
  - LYMPHADENOPATHY [None]
  - HODGKIN'S DISEASE [None]
